FAERS Safety Report 7406717-9 (Version None)
Quarter: 2011Q2

REPORT INFORMATION
  Report Type: 
  Country: None (occurrence: None)
  Receive Date: 20110401
  Receipt Date: 20110311
  Transmission Date: 20111010
  Serious: Yes (Death, Hospitalization)
  Sender: FDA-Public Use
  Company Number: 029179

PATIENT
  Age: 7 Year
  Sex: Female

DRUGS (4)
  1. VALPROATE SODIUM [Suspect]
     Indication: STATUS EPILEPTICUS
     Dosage: (DOSE WEANED)
  2. LEVETIRACETAM [Suspect]
     Indication: STATUS EPILEPTICUS
     Dosage: (DOSE WEANED)
  3. TOPIRAMATE [Suspect]
     Indication: STATUS EPILEPTICUS
     Dosage: (DOSE WEANED)
  4. CLOBAZAM [Suspect]
     Indication: STATUS EPILEPTICUS
     Dosage: (DOSE WEANED)

REACTIONS (3)
  - ENCEPHALOPATHY [None]
  - STATUS EPILEPTICUS [None]
  - SUDDEN UNEXPLAINED DEATH IN EPILEPSY [None]
